FAERS Safety Report 24737125 (Version 1)
Quarter: 2024Q4

REPORT INFORMATION
  Report Type: Spontaneous
  Country: CN (occurrence: CN)
  Receive Date: 20241216
  Receipt Date: 20241216
  Transmission Date: 20250115
  Serious: Yes (Other)
  Sender: Teyro Labs
  Company Number: CN-TEYRO-2024-TY-000956

PATIENT

DRUGS (3)
  1. GEMCITABINE [Suspect]
     Active Substance: GEMCITABINE
     Indication: Pancreatic carcinoma metastatic
     Dosage: ON DAYS 1 AND 8, IN A 21-DAY CYCLE
     Route: 042
  2. PACLITAXEL [Suspect]
     Active Substance: PACLITAXEL
     Indication: Pancreatic carcinoma metastatic
     Dosage: ON DAYS 1 AND 8,
     Route: 042
  3. TORIPALIMAB [Suspect]
     Active Substance: TORIPALIMAB
     Indication: Pancreatic carcinoma metastatic
     Dosage: ON DAY 1
     Route: 042

REACTIONS (1)
  - Neoplasm progression [Unknown]
